FAERS Safety Report 8522833-2 (Version None)
Quarter: 2012Q3

REPORT INFORMATION
  Report Type: 
  Country: None (occurrence: None)
  Receive Date: 20120720
  Receipt Date: 20120711
  Transmission Date: 20120928
  Serious: Yes (Life-Threatening)
  Sender: FDA-Public Use
  Company Number: FR-AMGEN-FRASP2012043516

PATIENT
  Age: 69 Year
  Sex: Male

DRUGS (9)
  1. METHOTREXATE SODIUM [Concomitant]
     Indication: RHEUMATOID ARTHRITIS
     Dosage: 20 MG, WEEKLY
     Dates: start: 20081201
  2. FOLIC ACID [Concomitant]
     Dosage: 1 DF, 1X/DAY EXCEPT THE DAY BEFORE AND AFTER METHOTREXATE ADMINISTRATION
  3. JANUVIA [Concomitant]
  4. ISOPTIN [Concomitant]
     Dosage: UNK UNK, UNK
  5. ENBREL [Suspect]
     Indication: RHEUMATOID ARTHRITIS
     Dosage: 50 MG, WEEKLY
     Route: 058
     Dates: start: 20081201, end: 20110123
  6. CETIRIZINE HCL [Concomitant]
     Dosage: UNK
  7. METFORMIN HYDROCHLORIDE [Concomitant]
  8. ASPIRIN [Concomitant]
     Dosage: UNK
  9. ACETAMINOPHEN [Concomitant]
     Dosage: UNK

REACTIONS (1)
  - PROSTATE CANCER [None]
